FAERS Safety Report 6444535-9 (Version None)
Quarter: 2009Q4

REPORT INFORMATION
  Report Type: 
  Country: None (occurrence: None)
  Receive Date: 20091117
  Receipt Date: 20091117
  Transmission Date: 20100525
  Serious: Yes (Other)
  Sender: FDA-Public Use
  Company Number: None

PATIENT
  Sex: Male
  Weight: 75 kg

DRUGS (7)
  1. INTEGRILIN [Suspect]
     Indication: POSTOPERATIVE CARE
     Dosage: 2MCG/KG/MIN -12ML/HR- CONTINUOUS INFUSIO IV
     Route: 042
     Dates: start: 20091116, end: 20091116
  2. INTEGRILIN [Suspect]
     Indication: STENT PLACEMENT
     Dosage: 2MCG/KG/MIN -12ML/HR- CONTINUOUS INFUSIO IV
     Route: 042
     Dates: start: 20091116, end: 20091116
  3. ASPIRIN TAB [Concomitant]
  4. PLAVIX [Concomitant]
  5. ATENOLOL [Concomitant]
  6. SYNTHROID [Concomitant]
  7. HOME MEDICATION [Concomitant]

REACTIONS (3)
  - INFUSION SITE HAEMATOMA [None]
  - INFUSION SITE PAIN [None]
  - INFUSION SITE SWELLING [None]
